FAERS Safety Report 12271192 (Version 1)
Quarter: 2016Q2

REPORT INFORMATION
  Report Type: Spontaneous
  Country: GB (occurrence: GB)
  Receive Date: 20160415
  Receipt Date: 20160415
  Transmission Date: 20160815
  Serious: Yes (Hospitalization, Other)
  Sender: FDA-Public Use
  Company Number: GB-SUN PHARMACEUTICAL INDUSTRIES LTD-2016RR-114777

PATIENT
  Age: 63 Year
  Sex: Male

DRUGS (4)
  1. CLOZARIL [Suspect]
     Active Substance: CLOZAPINE
     Indication: SCHIZOPHRENIA
     Dosage: 625 MG, QD
     Route: 048
     Dates: start: 20110926
  2. CLONAZEPAM. [Suspect]
     Active Substance: CLONAZEPAM
     Indication: AGITATION
     Dosage: 0.5 MG, BID
     Route: 048
  3. CLOZARIL [Suspect]
     Active Substance: CLOZAPINE
     Dosage: UNK (OVERDOSE)
     Route: 048
     Dates: start: 20160226, end: 201603
  4. PREGABALIN. [Suspect]
     Active Substance: PREGABALIN
     Indication: ANXIETY
     Dosage: 100 MG, QD
     Route: 048

REACTIONS (6)
  - Confusional state [Unknown]
  - Overdose [Recovered/Resolved]
  - Dyspnoea [Unknown]
  - Sedation [Recovered/Resolved]
  - Senile dementia [Unknown]
  - Delirium [Unknown]

NARRATIVE: CASE EVENT DATE: 20160226
